FAERS Safety Report 23139635 (Version 1)
Quarter: 2023Q4

REPORT INFORMATION
  Report Type: Spontaneous
  Country: US (occurrence: US)
  Receive Date: 20231102
  Receipt Date: 20231102
  Transmission Date: 20240109
  Serious: Yes (Other)
  Sender: FDA-Public Use
  Company Number: US-BRISTOL-MYERS SQUIBB COMPANY-2023-154482

PATIENT
  Age: 65 Year
  Sex: Female

DRUGS (1)
  1. POMALYST [Suspect]
     Active Substance: POMALIDOMIDE
     Indication: Plasma cell myeloma
     Dosage: ^TOME 1 CAPSULA POR VIA ORAL CADA DIA DURANTE 21 DIAS, SEGUIDOS DE UN PERIODO D^
     Route: 048
     Dates: start: 20231012, end: 20231024

REACTIONS (1)
  - Pneumonia [Not Recovered/Not Resolved]
